FAERS Safety Report 20227274 (Version 1)
Quarter: 2021Q4

REPORT INFORMATION
  Report Type: Other
  Country: CN (occurrence: None)
  Receive Date: 20211224
  Receipt Date: 20211224
  Transmission Date: 20220304
  Serious: Yes (Other)
  Sender: FDA-Public Use
  Company Number: CN-ROCHE-2981801

PATIENT

DRUGS (3)
  1. BEVACIZUMAB [Suspect]
     Active Substance: BEVACIZUMAB
     Indication: Ovarian cancer
     Dosage: INTRAVENOUSLY INFUSED FOR 90 MIN
     Route: 042
  2. PACLITAXEL [Suspect]
     Active Substance: PACLITAXEL
     Indication: Ovarian cancer
     Dosage: 135-175 MG/M2
     Route: 042
  3. TROPISETRON [Concomitant]
     Active Substance: TROPISETRON
     Indication: Prophylaxis of nausea and vomiting

REACTIONS (7)
  - Granulocytopenia [Unknown]
  - Thrombocytopenia [Unknown]
  - Nausea [Unknown]
  - Vomiting [Unknown]
  - Myelosuppression [Unknown]
  - Neutropenia [Unknown]
  - Renal impairment [Unknown]
